FAERS Safety Report 22273817 (Version 1)
Quarter: 2023Q2

REPORT INFORMATION
  Report Type: Spontaneous
  Country: US (occurrence: US)
  Receive Date: 20230502
  Receipt Date: 20230502
  Transmission Date: 20230722
  Serious: Yes (Other)
  Sender: FDA-Public Use
  Company Number: US-GILEAD-2023-0626002

PATIENT
  Sex: Male
  Weight: 84.6 kg

DRUGS (1)
  1. YESCARTA [Suspect]
     Active Substance: AXICABTAGENE CILOLEUCEL
     Indication: Diffuse large B-cell lymphoma
     Dosage: UNK
     Route: 065
     Dates: start: 20221117

REACTIONS (18)
  - Acute kidney injury [Unknown]
  - Cytokine release syndrome [Unknown]
  - Hyponatraemia [Unknown]
  - Pyrexia [Unknown]
  - Hypotension [Unknown]
  - Fatigue [Unknown]
  - Tachycardia [Unknown]
  - Aspartate aminotransferase increased [Unknown]
  - Alanine aminotransferase increased [Unknown]
  - Hypotension [Unknown]
  - Hypofibrinogenaemia [Unknown]
  - Tachypnoea [Unknown]
  - Diarrhoea [Unknown]
  - Hypoalbuminaemia [Unknown]
  - Agitation [Unknown]
  - Confusional state [Unknown]
  - Tremor [Unknown]
  - Decreased appetite [Unknown]
